FAERS Safety Report 6904419-6 (Version None)
Quarter: 2010Q3

REPORT INFORMATION
  Report Type: 
  Country: None (occurrence: None)
  Receive Date: 20100804
  Receipt Date: 20090516
  Transmission Date: 20110219
  Serious: No
  Sender: FDA-Public Use
  Company Number: US-PFIZER INC-2009178024

PATIENT
  Sex: Female
  Weight: 45.4 kg

DRUGS (3)
  1. LYRICA [Suspect]
     Indication: RHEUMATOID ARTHRITIS
     Dosage: UNK
     Dates: start: 20090228, end: 20090228
  2. LYRICA [Suspect]
     Indication: FIBROMYALGIA
  3. CARDIAC THERAPY [Concomitant]
     Dosage: UNK

REACTIONS (3)
  - DISTURBANCE IN ATTENTION [None]
  - DIZZINESS [None]
  - NAUSEA [None]
